FAERS Safety Report 8206508-5 (Version None)
Quarter: 2012Q1

REPORT INFORMATION
  Report Type: 
  Country: None (occurrence: None)
  Receive Date: 20120313
  Receipt Date: 20120309
  Transmission Date: 20120608
  Serious: Yes (Life-Threatening)
  Sender: FDA-Public Use
  Company Number: TR-ASTRAZENECA-2012SE16561

PATIENT
  Age: 35 Year
  Sex: Female
  Weight: 90 kg

DRUGS (2)
  1. MARCAINE [Suspect]
     Indication: SPINAL ANAESTHESIA
     Dosage: ONCE
     Route: 037
  2. AMPICILLIN [Suspect]
     Indication: ENDOCARDITIS
     Dosage: ONCE
     Route: 042

REACTIONS (1)
  - ANAPHYLACTIC REACTION [None]
